FAERS Safety Report 6891530-1 (Version None)
Quarter: 2010Q3

REPORT INFORMATION
  Report Type: 
  Country: None (occurrence: None)
  Receive Date: 20100731
  Receipt Date: 20070921
  Transmission Date: 20110219
  Serious: No
  Sender: FDA-Public Use
  Company Number: US-PFIZER INC-2006114902

PATIENT
  Sex: Female
  Weight: 72.57 kg

DRUGS (6)
  1. NEURONTIN [Suspect]
     Indication: NEUROPATHY PERIPHERAL
  2. GABAPENTIN [Suspect]
     Indication: NEUROPATHY PERIPHERAL
     Dosage: 6 EVERY 1 DAYS
  3. GABAPENTIN [Suspect]
     Dosage: 6 EVERY 1 DAYS
     Dates: start: 20060628
  4. CHOLESTEROL [Concomitant]
  5. ANTIHYPERTENSIVES [Concomitant]
  6. ALL OTHER THERAPEUTIC PRODUCTS [Concomitant]

REACTIONS (1)
  - PAIN [None]
